FAERS Safety Report 17982529 (Version 2)
Quarter: 2020Q3

REPORT INFORMATION
  Report Type: Spontaneous
  Country: US (occurrence: US)
  Receive Date: 20200706
  Receipt Date: 20200924
  Transmission Date: 20201103
  Serious: Yes (Other)
  Sender: FDA-Public Use
  Company Number: US-GLAXOSMITHKLINE-US2020AMR115450

PATIENT
  Sex: Male

DRUGS (2)
  1. PREDNISONE. [Suspect]
     Active Substance: PREDNISONE
     Indication: PRODUCT USED FOR UNKNOWN INDICATION
     Dosage: UNK
     Route: 065
  2. NUCALA [Suspect]
     Active Substance: MEPOLIZUMAB
     Indication: ASTHMA
     Dosage: 100 MG, EVERY 30 DAYS
     Route: 065

REACTIONS (10)
  - Back disorder [Unknown]
  - Rash macular [Unknown]
  - Sleep disorder [Unknown]
  - Skin disorder [Unknown]
  - Nerve compression [Unknown]
  - Haemorrhage [Unknown]
  - Disability [Unknown]
  - Weight decreased [Unknown]
  - Scratch [Unknown]
  - Fall [Unknown]

NARRATIVE: CASE EVENT DATE: 2019
